FAERS Safety Report 12396739 (Version 3)
Quarter: 2017Q2

REPORT INFORMATION
  Report Type: Spontaneous
  Country: DK (occurrence: DK)
  Receive Date: 20160524
  Receipt Date: 20170508
  Transmission Date: 20170830
  Serious: Yes (Hospitalization, Other)
  Sender: FDA-Public Use
  Company Number: DK-ACCORD-040915

PATIENT
  Age: 61 Year
  Sex: Female

DRUGS (12)
  1. OXALIPLATIN HOSPIRA [Suspect]
     Active Substance: OXALIPLATIN
     Indication: RECTAL CANCER
     Dosage: STRENGTH: 5 MG/ML
     Route: 042
     Dates: start: 20140226, end: 20140604
  2. ELTROXIN [Concomitant]
     Active Substance: LEVOTHYROXINE
     Dosage: DOSE CHANGED MANY TIMES
     Dates: start: 201403
  3. ALOXI [Concomitant]
     Active Substance: PALONOSETRON HYDROCHLORIDE
     Indication: NAUSEA
     Dosage: WHEN NEEDED
     Route: 048
     Dates: start: 20140226, end: 201406
  4. ACTILAX [Concomitant]
     Active Substance: LACTULOSE
     Indication: CONSTIPATION
     Dosage: STRENGTH: 7.5 MG/ML.?DOSAGE: 5-10 DROPS
     Route: 048
     Dates: start: 20140226, end: 201406
  5. ANCOZAN COMP [Concomitant]
     Active Substance: HYDROCHLOROTHIAZIDE\LOSARTAN POTASSIUM
     Indication: HYPERTENSION
     Dosage: STRENGTH: 100MG + 25MG.?GOT FOR MANY YEARS.
     Dates: end: 20140627
  6. POTASSIUM [Concomitant]
     Active Substance: POTASSIUM
     Dosage: FAET I MANGE AR
  7. AMLODIPINE [Concomitant]
     Active Substance: AMLODIPINE BESYLATE
     Indication: HYPERTENSION
     Dosage: FAET I MANGE AR.
  8. EMPERAL [Concomitant]
     Active Substance: METOCLOPRAMIDE HYDROCHLORIDE
     Indication: NAUSEA
     Dosage: WHEN NEEDED
     Route: 048
     Dates: start: 20140226, end: 20140627
  9. PREDNISOLONE. [Concomitant]
     Active Substance: PREDNISOLONE
     Indication: NAUSEA
     Dates: start: 20140226, end: 201406
  10. FRAGMIN [Concomitant]
     Active Substance: DALTEPARIN SODIUM
     Indication: THROMBOSIS PROPHYLAXIS
     Dosage: DOSE WAS NOT KNOWN
     Dates: start: 20140415, end: 20141015
  11. FLUOROURACIL ACCORD [Suspect]
     Active Substance: FLUOROURACIL
     Indication: RECTAL CANCER
     Dosage: STRENGTH: 50 MG/ML
     Route: 042
     Dates: start: 20140226, end: 20140605
  12. METOPROLOL. [Concomitant]
     Active Substance: METOPROLOL
     Indication: HYPERTENSION
     Dosage: FAET I MANGE AR.

REACTIONS (6)
  - Nasal mucosal disorder [Recovered/Resolved]
  - Bone marrow failure [Recovered/Resolved]
  - Pulmonary embolism [Unknown]
  - Cognitive disorder [Recovering/Resolving]
  - Alopecia [Recovered/Resolved]
  - Fatigue [Recovered/Resolved]

NARRATIVE: CASE EVENT DATE: 2014
